FAERS Safety Report 7365673-2 (Version None)
Quarter: 2011Q1

REPORT INFORMATION
  Report Type: 
  Country: None (occurrence: None)
  Receive Date: 20110316
  Receipt Date: 20110316
  Transmission Date: 20110831
  Serious: Yes (Disabling)
  Sender: FDA-Public Use
  Company Number: None

PATIENT

DRUGS (2)
  1. OMNISCAN [Concomitant]
     Indication: NUCLEAR MAGNETIC RESONANCE IMAGING
     Dosage: INTRAVENOUSLY
     Dates: start: 20060620
  2. OMNISCAN [Suspect]
     Indication: NUCLEAR MAGNETIC RESONANCE IMAGING
     Dosage: INTRAVENOUSLY
     Route: 042
     Dates: start: 20060616

REACTIONS (8)
  - JOINT SWELLING [None]
  - RASH [None]
  - NEPHROGENIC SYSTEMIC FIBROSIS [None]
  - SKIN EXFOLIATION [None]
  - FATIGUE [None]
  - ARTHRALGIA [None]
  - MUSCULAR WEAKNESS [None]
  - RASH MACULAR [None]
